FAERS Safety Report 5739966-6 (Version None)
Quarter: 2008Q2

REPORT INFORMATION
  Report Type: 
  Country: None (occurrence: None)
  Receive Date: 20080513
  Receipt Date: 20080513
  Transmission Date: 20081010
  Serious: Yes (Death)
  Sender: FDA-Public Use
  Company Number: None

PATIENT
  Age: 46 Year
  Sex: Male
  Weight: 94.8 kg

DRUGS (14)
  1. TRUVADA [Suspect]
     Indication: HIV INFECTION
     Dosage: 500 MG QD ORAL
     Route: 048
     Dates: start: 20060419, end: 20080407
  2. EPZICOM [Suspect]
     Indication: HIV INFECTION
     Dosage: 900 MG QD ORAL
     Route: 048
     Dates: start: 20060419, end: 20080407
  3. EFAVIRENZ [Suspect]
     Indication: HIV INFECTION
     Dosage: 600 MG QD ORAL
     Route: 048
     Dates: start: 20060419, end: 20080407
  4. MIRTAZAPINE [Concomitant]
  5. ZOLOFT [Concomitant]
  6. SOMA [Concomitant]
  7. VICODIN [Concomitant]
  8. SEROQUEL (QUETIABPINE) [Concomitant]
  9. AMBIEN [Concomitant]
  10. ATENOLOL [Concomitant]
  11. ZANTAC [Concomitant]
  12. ULTRAM [Concomitant]
  13. VENTOLIN [Concomitant]
  14. COMBIVENT (ALBUTEROL/IPRATROPIUM) [Concomitant]

REACTIONS (7)
  - BACK PAIN [None]
  - BLOOD ALCOHOL INCREASED [None]
  - CARDIAC DISORDER [None]
  - HYPERTENSIVE HEART DISEASE [None]
  - NO THERAPEUTIC RESPONSE [None]
  - OVERDOSE [None]
  - SUDDEN DEATH [None]
